FAERS Safety Report 8415159-9 (Version None)
Quarter: 2012Q2

REPORT INFORMATION
  Report Type: 
  Country: None (occurrence: None)
  Receive Date: 20120606
  Receipt Date: 20120531
  Transmission Date: 20120825
  Serious: No
  Sender: FDA-Public Use
  Company Number: US-PFIZER INC-2012131634

PATIENT
  Sex: Male
  Weight: 46.259 kg

DRUGS (3)
  1. ZOLOFT [Concomitant]
     Dosage: UNK
  2. LEVOCARNITINE [Concomitant]
     Dosage: UNK
  3. GENOTROPIN [Suspect]
     Indication: GROWTH HORMONE DEFICIENCY
     Dosage: 2 MG, 1X/DAY
     Route: 058
     Dates: start: 20120501

REACTIONS (2)
  - VOMITING [None]
  - ABDOMINAL PAIN UPPER [None]
